FAERS Safety Report 22073148 (Version 1)
Quarter: 2023Q1

REPORT INFORMATION
  Report Type: Spontaneous
  Country: PT (occurrence: PT)
  Receive Date: 20230308
  Receipt Date: 20230308
  Transmission Date: 20230418
  Serious: Yes (Other)
  Sender: FDA-Public Use
  Company Number: PT-009507513-2302PRT006885

PATIENT
  Age: 63 Year
  Sex: Male

DRUGS (3)
  1. ERTAPENEM [Suspect]
     Active Substance: ERTAPENEM
     Indication: Pulmonary sepsis
     Dosage: UNK
     Route: 065
  2. RECARBRIO [Suspect]
     Active Substance: CILASTATIN\IMIPENEM ANHYDROUS\RELEBACTAM ANHYDROUS
     Indication: Pulmonary sepsis
     Dosage: UNK
     Route: 065
  3. AVIBACTAM SODIUM\CEFTAZIDIME [Suspect]
     Active Substance: AVIBACTAM SODIUM\CEFTAZIDIME
     Indication: Pulmonary sepsis
     Dosage: UNK
     Route: 065

REACTIONS (5)
  - Subdural abscess [Recovered/Resolved]
  - Klebsiella bacteraemia [Recovered/Resolved]
  - Therapy non-responder [Unknown]
  - Epidural catheter placement [Unknown]
  - Condition aggravated [Recovered/Resolved]
